FAERS Safety Report 9384491 (Version 1)
Quarter: 2013Q3

REPORT INFORMATION
  Report Type: Spontaneous
  Country: TR (occurrence: TR)
  Receive Date: 20130705
  Receipt Date: 20130705
  Transmission Date: 20140515
  Serious: Yes (Hospitalization)
  Sender: FDA-Public Use
  Company Number: TR-SANOFI-AVENTIS-2013SA065266

PATIENT
  Age: 76 Year
  Sex: Male

DRUGS (7)
  1. LANTUS [Suspect]
     Indication: SUICIDE ATTEMPT
     Dosage: DOSE:14 UNIT(S)
     Route: 065
  2. LANTUS [Suspect]
     Indication: TYPE 1 DIABETES MELLITUS
     Dosage: DOSE:14 UNIT(S)
     Route: 065
  3. LANTUS [Suspect]
     Indication: SUICIDE ATTEMPT
     Dosage: DOSE:500 UNIT(S)
     Route: 058
  4. LANTUS [Suspect]
     Indication: TYPE 1 DIABETES MELLITUS
     Dosage: DOSE:500 UNIT(S)
     Route: 058
  5. LOSARTAN [Concomitant]
  6. CARBIDOPA/ENTACAPONE/LEVODOPA [Concomitant]
  7. PIRACETAM [Concomitant]

REACTIONS (9)
  - Suicide attempt [Unknown]
  - Intentional overdose [Unknown]
  - Hypoglycaemia [Recovered/Resolved]
  - Hyperhidrosis [Recovered/Resolved]
  - Anxiety [Recovered/Resolved]
  - Heart rate increased [Recovered/Resolved]
  - Tachycardia [Recovered/Resolved]
  - Body temperature decreased [Unknown]
  - Blood potassium decreased [Unknown]
